FAERS Safety Report 16007019 (Version 2)
Quarter: 2019Q2

REPORT INFORMATION
  Report Type: Spontaneous
  Country: RU (occurrence: RU)
  Receive Date: 20190226
  Receipt Date: 20190414
  Transmission Date: 20190711
  Serious: Yes (Other)
  Sender: FDA-Public Use
  Company Number: PHHY2019RU043390

PATIENT
  Age: 76 Year
  Sex: Male

DRUGS (4)
  1. CAPECITABINE. [Suspect]
     Active Substance: CAPECITABINE
     Dosage: 1600 MG/M2, QD (FROM DAY 1 TO 14, 21 DAY CYCLE)
     Route: 048
     Dates: end: 201601
  2. OXALIPLATIN. [Suspect]
     Active Substance: OXALIPLATIN
     Dosage: 100 MG/M2, ON 1ST DAY OF 21 DAYS CYCLE
     Route: 042
     Dates: end: 201601
  3. CAPECITABINE. [Suspect]
     Active Substance: CAPECITABINE
     Indication: METASTATIC GASTRIC CANCER
     Dosage: 2000 MG/M2, QD (FROM DAY 1 TO 14, 21 DAY CYCLE)
     Route: 048
     Dates: start: 201509
  4. OXALIPLATIN. [Suspect]
     Active Substance: OXALIPLATIN
     Indication: METASTATIC GASTRIC CANCER
     Dosage: 130 MG/M2, ON 1ST DAY OF 21 DAYS CYCLE
     Route: 042
     Dates: start: 201509

REACTIONS (5)
  - Polyneuropathy [Unknown]
  - Palmoplantar keratoderma [Unknown]
  - Neutropenia [Unknown]
  - Neurotoxicity [Unknown]
  - Diarrhoea [Unknown]
